FAERS Safety Report 20577827 (Version 1)
Quarter: 2022Q1

REPORT INFORMATION
  Report Type: Spontaneous
  Country: US (occurrence: None)
  Receive Date: 20220309
  Receipt Date: 20220309
  Transmission Date: 20220423
  Serious: Yes (Other)
  Sender: FDA-Public Use
  Company Number: None

PATIENT
  Age: 70 Year
  Sex: Female
  Weight: 58.5 kg

DRUGS (9)
  1. TYRVAYA [Suspect]
     Active Substance: VARENICLINE TARTRATE
     Indication: Dry eye
     Dosage: OTHER QUANTITY : 2 SPRAY(S);?OTHER ROUTE : INTO NOSE;?
     Route: 050
  2. OMEPRAZOLE [Concomitant]
     Active Substance: OMEPRAZOLE
  3. LOSARTAN [Concomitant]
     Active Substance: LOSARTAN
  4. SYNTHROID [Concomitant]
     Active Substance: LEVOTHYROXINE SODIUM
  5. EZETIMIBE [Concomitant]
     Active Substance: EZETIMIBE
  6. ATORVASTATIN [Concomitant]
     Active Substance: ATORVASTATIN
  7. FISH OIL [Concomitant]
     Active Substance: FISH OIL
  8. GLUCOSAMINE [Concomitant]
     Active Substance: GLUCOSAMINE
  9. CHONDROITIN [Concomitant]
     Active Substance: CHONDROITIN

REACTIONS (1)
  - Rash [None]

NARRATIVE: CASE EVENT DATE: 20220305
